FAERS Safety Report 7170833-X (Version None)
Quarter: 2010Q4

REPORT INFORMATION
  Report Type: 
  Country: None (occurrence: None)
  Receive Date: 20101214
  Receipt Date: 20101214
  Transmission Date: 20110411
  Serious: Yes (Other)
  Sender: FDA-Public Use
  Company Number: None

PATIENT
  Sex: Male
  Weight: 161.2537 kg

DRUGS (2)
  1. LISINOPRIL [Suspect]
     Indication: HYPERTENSION
     Dosage: 20 MG DAILY P.O.
     Route: 048
     Dates: start: 20101108, end: 20101213
  2. LISINOPRIL [Suspect]
     Indication: PROTEINURIA
     Dosage: 20 MG DAILY P.O.
     Route: 048
     Dates: start: 20101108, end: 20101213

REACTIONS (1)
  - COUGH [None]
